FAERS Safety Report 14708760 (Version 1)
Quarter: 2018Q2

REPORT INFORMATION
  Report Type: Spontaneous
  Country: US (occurrence: US)
  Receive Date: 20180403
  Receipt Date: 20180403
  Transmission Date: 20180711
  Serious: Yes (Hospitalization, Other)
  Sender: FDA-Public Use
  Company Number: US-AMNEAL PHARMACEUTICALS-2018AMN00024

PATIENT
  Age: 74 Year
  Sex: Male
  Weight: 68.93 kg

DRUGS (7)
  1. SULFASALAZINE DELAYED-RELEASE [Concomitant]
     Active Substance: SULFASALAZINE
     Indication: RHEUMATOID ARTHRITIS
     Dosage: UNK
     Route: 065
     Dates: start: 200501, end: 20171222
  2. AVELUMAB [Suspect]
     Active Substance: AVELUMAB
     Indication: BLADDER CANCER
     Dosage: UNK, EVERY TWO WEEKS
     Route: 042
     Dates: start: 20171011
  3. IBUPROFEN. [Suspect]
     Active Substance: IBUPROFEN
     Indication: ARTHRALGIA
     Dosage: 400 MG, AS NEEDED
     Route: 048
     Dates: start: 20171127, end: 20171222
  4. PREDNISOLONE. [Concomitant]
     Active Substance: PREDNISOLONE
     Indication: HEPATIC PAIN
     Dosage: 50 MG, 1X/DAY
     Route: 048
     Dates: start: 20171213
  5. DOMPERIDON [Concomitant]
     Active Substance: DOMPERIDONE
     Indication: NAUSEA
     Dosage: UNK
     Route: 065
     Dates: start: 20171113
  6. PARACETAMOL [Concomitant]
     Active Substance: ACETAMINOPHEN
     Indication: PAIN
     Dosage: UNK
     Route: 065
     Dates: start: 20170405, end: 20171222
  7. PANTOPRAZOLE [Concomitant]
     Active Substance: PANTOPRAZOLE
     Indication: DYSPEPSIA
     Dosage: UNK
     Route: 065
     Dates: start: 201704

REACTIONS (3)
  - Gastric ulcer haemorrhage [Recovered/Resolved]
  - Vomiting [Recovered/Resolved]
  - Melaena [Recovered/Resolved]

NARRATIVE: CASE EVENT DATE: 201712
